FAERS Safety Report 5003658-1 (Version None)
Quarter: 2006Q2

REPORT INFORMATION
  Report Type: 
  Country: None (occurrence: None)
  Receive Date: 20060516
  Receipt Date: 20051031
  Transmission Date: 20061013
  Serious: Yes (Hospitalization)
  Sender: FDA-Public Use
  Company Number: US-MERCK-0511USA00095

PATIENT
  Age: 67 Year
  Sex: Male
  Weight: 86 kg

DRUGS (13)
  1. VIOXX [Suspect]
     Indication: ARTHRITIS
     Route: 048
     Dates: start: 20010803, end: 20031226
  2. ALLEGRA [Concomitant]
     Indication: HYPERSENSITIVITY
     Route: 065
  3. ZOCOR [Concomitant]
     Indication: BLOOD CHOLESTEROL
     Route: 065
  4. AMBIEN [Concomitant]
     Route: 065
  5. LISINOPRIL [Concomitant]
     Indication: BLOOD PRESSURE
     Route: 065
  6. MINOCYCLINE [Concomitant]
     Indication: ROSACEA
     Route: 065
  7. PRINZIDE [Concomitant]
     Route: 065
  8. LOCOID [Concomitant]
     Route: 065
  9. METROGEL [Concomitant]
     Route: 065
  10. TRIMOX [Concomitant]
     Route: 065
  11. POTASSIUM (UNSPECIFIED) [Concomitant]
     Route: 065
  12. HYDROCODONE BITARTRATE [Concomitant]
     Route: 065
  13. HERBS (UNSPECIFIED) [Concomitant]
     Route: 065

REACTIONS (2)
  - BRAIN STEM HAEMORRHAGE [None]
  - FALL [None]
